FAERS Safety Report 15955047 (Version 3)
Quarter: 2019Q2

REPORT INFORMATION
  Report Type: Spontaneous
  Country: US (occurrence: US)
  Receive Date: 20190213
  Receipt Date: 20190611
  Transmission Date: 20190711
  Serious: No
  Sender: FDA-Public Use
  Company Number: US-PFIZER INC-2019055667

PATIENT
  Age: 63 Year
  Sex: Male
  Weight: 126 kg

DRUGS (16)
  1. LISINOPRIL HCTZ [Concomitant]
     Active Substance: HYDROCHLOROTHIAZIDE\LISINOPRIL
     Indication: HYPERTENSION
     Dosage: UNK, 1X/DAY (20/25 MG)
     Route: 048
  2. FOLIC ACID. [Concomitant]
     Active Substance: FOLIC ACID
     Dosage: 1 MG, 1X/DAY
  3. NALTREXONE [Concomitant]
     Active Substance: NALTREXONE
     Dosage: UNK, 1X/DAY (AT NIGHT)
  4. LYRICA [Suspect]
     Active Substance: PREGABALIN
     Indication: FIBROMYALGIA
     Dosage: 400 MG, DAILY (ONE AT BREAKFAST, TWO AT 4PM, AND ONE AT NIGHT)
     Route: 048
  5. OMEPRAZOLE. [Concomitant]
     Active Substance: OMEPRAZOLE
     Dosage: 40 MG, 1X/DAY (IN THE MORNING)
     Route: 048
  6. PROPRANOLOL [Concomitant]
     Active Substance: PROPRANOLOL HYDROCHLORIDE
     Indication: NEURALGIA
     Dosage: 60 MG, 1X/DAY (IN THE MORNING)
     Route: 048
  7. CLONAZEPAM. [Concomitant]
     Active Substance: CLONAZEPAM
     Indication: GASTROINTESTINAL DISORDER
     Dosage: 0.5 MG, 2X/DAY
     Route: 048
  8. SLOW-MAG [Concomitant]
     Active Substance: MAGNESIUM CHLORIDE
     Dosage: 2 DF, 1X/DAY (AT NIGHT)
  9. MECLIZINE HCL [Concomitant]
     Active Substance: MECLIZINE HYDROCHLORIDE
     Indication: DIZZINESS
     Dosage: 25 MG, UNK
  10. BABY ASPIRIN [Concomitant]
     Active Substance: ASPIRIN
     Indication: HYPERTENSION
     Dosage: 81 MG, 1X/DAY
     Route: 048
  11. LYRICA [Suspect]
     Active Substance: PREGABALIN
     Indication: NEUROPATHY PERIPHERAL
     Dosage: 100 MG, 4X/DAY
     Route: 048
  12. CENTRUM SILVER MEN 50+ [Concomitant]
     Dosage: 1 DF, 1X/DAY (IN THE MORNING)
  13. DICYCLOMINE [Concomitant]
     Active Substance: DICYCLOMINE HYDROCHLORIDE
     Indication: INTESTINAL PERFORATION
     Dosage: 20 MG, 3X/DAY
     Route: 048
  14. CITALOPRAM [Concomitant]
     Active Substance: CITALOPRAM HYDROBROMIDE
     Dosage: 20 MG, 1X/DAY (AT NIGHT)
  15. PROPRANOLOL [Concomitant]
     Active Substance: PROPRANOLOL HYDROCHLORIDE
     Indication: ABDOMINAL DISCOMFORT
  16. CELECOXIB. [Concomitant]
     Active Substance: CELECOXIB
     Dosage: 200 MG, AS NEEDED [NOT MORE THAN TWO A DAY]

REACTIONS (4)
  - Loss of personal independence in daily activities [Unknown]
  - Product use issue [Unknown]
  - Pain [Unknown]
  - Off label use [Unknown]
